FAERS Safety Report 6920298-5 (Version None)
Quarter: 2010Q3

REPORT INFORMATION
  Report Type: 
  Country: None (occurrence: None)
  Receive Date: 20100809
  Receipt Date: 20100729
  Transmission Date: 20110219
  Serious: Yes (Other)
  Sender: FDA-Public Use
  Company Number: US-1182791

PATIENT
  Age: 87 Year
  Sex: Female

DRUGS (8)
  1. PREDNISOLONE ACETATE [Suspect]
     Indication: CATARACT OPERATION
     Dosage: SEE IMAGE
     Route: 047
  2. PREDNISOLONE ACETATE [Suspect]
     Indication: CATARACT OPERATION
     Dosage: SEE IMAGE
     Route: 047
  3. PREDNISOLONE ACETATE [Suspect]
     Indication: CATARACT OPERATION
     Dosage: SEE IMAGE
     Route: 047
  4. RIFAMPIN [Concomitant]
  5. ERYTHROMYCIN [Concomitant]
  6. ETHAMBUTOL HYDROCHLORIDE [Concomitant]
  7. NIFEDIPINE [Concomitant]
  8. IRON [Concomitant]

REACTIONS (2)
  - CONJUNCTIVAL BLEB [None]
  - CONJUNCTIVAL DISCOLOURATION [None]
